FAERS Safety Report 14225065 (Version 2)
Quarter: 2017Q4

REPORT INFORMATION
  Report Type: Report from Study
  Country: DE (occurrence: DE)
  Receive Date: 20171127
  Receipt Date: 20171212
  Transmission Date: 20180321
  Serious: Yes (Hospitalization)
  Sender: FDA-Public Use
  Company Number: DE-ROCHE-2025810

PATIENT
  Age: 66 Year
  Sex: Female
  Weight: 80 kg

DRUGS (12)
  1. METOPROLOL. [Concomitant]
     Active Substance: METOPROLOL
     Route: 048
  2. SIMVASTATIN. [Concomitant]
     Active Substance: SIMVASTATIN
     Indication: HYPERLIPIDAEMIA
     Route: 048
  3. L-THYROXIN [Concomitant]
     Active Substance: LEVOTHYROXINE SODIUM
     Indication: HYPOTHYROIDISM
     Route: 048
  4. PANTOPRAZOLE [Concomitant]
     Active Substance: PANTOPRAZOLE
     Route: 048
  5. PHENPROCOUMON [Concomitant]
     Active Substance: PHENPROCOUMON
     Route: 065
  6. RITUXIMAB. [Suspect]
     Active Substance: RITUXIMAB
     Indication: NON-HODGKIN^S LYMPHOMA
     Dosage: TOTAL 8 CYCLES RECEIVED BY TIME OF ONSET OF EVENT.
     Route: 042
     Dates: start: 20120111, end: 20120821
  7. BENDAMUSTINE [Suspect]
     Active Substance: BENDAMUSTINE
     Indication: NON-HODGKIN^S LYMPHOMA
     Dosage: DOSE: 666-444 MG?DATE OF LAST DOSE PRIOR TO SAE: 27/JUN/2012?TOTAL 6 OF CYCLES RECEIVED BY TIME OF E
     Route: 042
     Dates: start: 20120112, end: 20120627
  8. CAPECITABINE. [Concomitant]
     Active Substance: CAPECITABINE
     Route: 065
     Dates: start: 20171026
  9. OXALIPLATIN. [Concomitant]
     Active Substance: OXALIPLATIN
     Route: 065
     Dates: start: 20171026
  10. RITUXIMAB. [Suspect]
     Active Substance: RITUXIMAB
     Dosage: 670-700 MG?TOTAL 23 CYCLES RECEIVED BY TIME OF ONSET OF EVENT.?DATE OF LAST DOSE PRIOR TO SAE: 23/JU
     Route: 042
     Dates: start: 20121017, end: 20160623
  11. NOVALGIN [Concomitant]
     Active Substance: METAMIZOLE SODIUM
     Indication: PAIN
     Dosage: AT BED
     Route: 048
  12. LISINOPRIL. [Concomitant]
     Active Substance: LISINOPRIL
     Route: 048

REACTIONS (1)
  - Metastasis [Recovered/Resolved]

NARRATIVE: CASE EVENT DATE: 20170912
